FAERS Safety Report 7373751-7 (Version None)
Quarter: 2011Q1

REPORT INFORMATION
  Report Type: 
  Country: None (occurrence: None)
  Receive Date: 20110315
  Receipt Date: 20110303
  Transmission Date: 20110831
  Serious: Yes (Other)
  Sender: FDA-Public Use
  Company Number: 2011SP010183

PATIENT
  Age: 34 Year
  Sex: Female

DRUGS (2)
  1. IMPLANON [Suspect]
     Indication: PRODUCT USED FOR UNKNOWN INDICATION
     Dosage: 1 DF; 1 DF
     Dates: start: 20041101, end: 20071101
  2. IMPLANON [Suspect]
     Indication: PRODUCT USED FOR UNKNOWN INDICATION
     Dosage: 1 DF; 1 DF
     Dates: start: 20071101, end: 20101101

REACTIONS (4)
  - NEURALGIA [None]
  - PARAESTHESIA [None]
  - DEVICE DIFFICULT TO USE [None]
  - PERIPHERAL NERVE LESION [None]
